FAERS Safety Report 23874857 (Version 2)
Quarter: 2024Q2

REPORT INFORMATION
  Report Type: Spontaneous
  Country: RU (occurrence: RU)
  Receive Date: 20240520
  Receipt Date: 20240524
  Transmission Date: 20240716
  Serious: Yes (Other)
  Sender: FDA-Public Use
  Company Number: RU-009507513-2405RUS002094

PATIENT
  Age: 59 Year
  Sex: Female

DRUGS (1)
  1. ZEPATIER [Suspect]
     Active Substance: ELBASVIR\GRAZOPREVIR
     Indication: Hepatitis C virus test positive
     Dosage: UNK
     Route: 048

REACTIONS (22)
  - Altered state of consciousness [Recovering/Resolving]
  - Swelling face [Recovering/Resolving]
  - Hypoaesthesia [Recovering/Resolving]
  - Tremor [Recovered/Resolved]
  - Tremor [Recovered/Resolved]
  - Dyspnoea [Recovered/Resolved]
  - Blood pressure abnormal [Unknown]
  - Cough [Recovered/Resolved]
  - Asthenia [Recovered/Resolved]
  - Dizziness [Unknown]
  - Blood pressure abnormal [Recovering/Resolving]
  - Blood pressure abnormal [Unknown]
  - Pain [Unknown]
  - Tremor [Recovered/Resolved]
  - Chills [Unknown]
  - Asthenia [Unknown]
  - Dyspnoea [Unknown]
  - Cough [Unknown]
  - Dry mouth [Unknown]
  - Blood pressure fluctuation [Unknown]
  - Discomfort [Unknown]
  - Surgery [Unknown]
